FAERS Safety Report 12154653 (Version 1)
Quarter: 2016Q1

REPORT INFORMATION
  Report Type: Spontaneous
  Country: US (occurrence: None)
  Receive Date: 20160304
  Receipt Date: 20160304
  Transmission Date: 20160526
  Serious: Yes (Life-Threatening, Hospitalization)
  Sender: FDA-Public Use
  Company Number: None

PATIENT
  Age: 72 Year
  Sex: Female
  Weight: 74.39 kg

DRUGS (9)
  1. LUTEIN/ZEAXANTHIN [Concomitant]
  2. KELP [Concomitant]
     Active Substance: KELP
  3. MULLEIN [Concomitant]
  4. TRAZADONE HCL [Suspect]
     Active Substance: TRAZODONE HYDROCHLORIDE
     Indication: INSOMNIA
     Route: 048
     Dates: start: 20151002
  5. METHYL B-12 [Concomitant]
  6. ALLEGRA [Concomitant]
     Active Substance: FEXOFENADINE HYDROCHLORIDE
  7. GLUTENAID [Concomitant]
  8. MULTI-VITAMIN MINERAL SUPPLEMENT [Concomitant]
     Active Substance: MINERALS\VITAMINS
  9. MILK THISTLE [Concomitant]
     Active Substance: MILK THISTLE

REACTIONS (9)
  - Loss of consciousness [None]
  - Nausea [None]
  - Head injury [None]
  - Fall [None]
  - Presyncope [None]
  - Seizure [None]
  - Tremor [None]
  - Haemorrhage intracranial [None]
  - Concussion [None]

NARRATIVE: CASE EVENT DATE: 20151003
